FAERS Safety Report 21050039 (Version 3)
Quarter: 2022Q4

REPORT INFORMATION
  Report Type: Spontaneous
  Country: US (occurrence: US)
  Receive Date: 20220706
  Receipt Date: 20221012
  Transmission Date: 20230113
  Serious: Yes (Hospitalization, Other)
  Sender: FDA-Public Use
  Company Number: US-MALLINCKRODT-T202203395

PATIENT
  Sex: Female
  Weight: 71 kg

DRUGS (4)
  1. H.P. ACTHAR [Suspect]
     Active Substance: CORTICOTROPIN
     Indication: Rheumatoid arthritis
     Dosage: 1 MILLILITER (80 UNITS), FIVE TIMES WEEKLY
     Route: 058
     Dates: start: 202004
  2. H.P. ACTHAR [Suspect]
     Active Substance: CORTICOTROPIN
     Indication: Stress fracture
     Dosage: 1 MILLILITER (80 UNITS), FIVE TIMES WEEKLY
     Route: 058
     Dates: start: 202204
  3. H.P. ACTHAR [Suspect]
     Active Substance: CORTICOTROPIN
     Indication: Osteoporosis
  4. H.P. ACTHAR [Suspect]
     Active Substance: CORTICOTROPIN
     Indication: Osteoporotic fracture

REACTIONS (6)
  - Staphylococcal infection [Unknown]
  - Intestinal obstruction [Unknown]
  - Cardiac disorder [Not Recovered/Not Resolved]
  - Loss of consciousness [Unknown]
  - Pain [Unknown]
  - Product dose omission issue [Unknown]

NARRATIVE: CASE EVENT DATE: 20220101
